FAERS Safety Report 6705064-8 (Version None)
Quarter: 2010Q2

REPORT INFORMATION
  Report Type: 
  Country: None (occurrence: None)
  Receive Date: 20100430
  Receipt Date: 20100426
  Transmission Date: 20101027
  Serious: Yes (Hospitalization)
  Sender: FDA-Public Use
  Company Number: B0650551A

PATIENT
  Age: 73 Year
  Sex: Female

DRUGS (3)
  1. CARVEDILOL [Suspect]
     Dosage: 6.25MG PER DAY
     Route: 048
     Dates: start: 20071001
  2. FUROSEMIDE [Suspect]
     Dosage: 40MG PER DAY
     Route: 048
     Dates: start: 20071001, end: 20081022
  3. ENALAPRIL MALEATE [Suspect]
     Dosage: 5MG PER DAY
     Route: 048
     Dates: start: 20071001, end: 20081022

REACTIONS (2)
  - DRUG INTERACTION [None]
  - RENAL FAILURE ACUTE [None]
